FAERS Safety Report 8114140-7 (Version None)
Quarter: 2012Q1

REPORT INFORMATION
  Report Type: 
  Country: None (occurrence: None)
  Receive Date: 20120204
  Receipt Date: 20120123
  Transmission Date: 20120608
  Serious: Yes (Other)
  Sender: FDA-Public Use
  Company Number: TR-MYLANLABS-2012S1001810

PATIENT
  Age: 65 Year
  Sex: Female

DRUGS (1)
  1. LATANOPROST [Suspect]
     Indication: GLAUCOMA
     Dosage: 0.005%, TO RIGHT EYE ONCE DAILY
     Route: 047

REACTIONS (2)
  - RETINAL DETACHMENT [None]
  - CHORIORETINOPATHY [None]
